FAERS Safety Report 10380754 (Version 1)
Quarter: 2014Q1

REPORT INFORMATION
  Report Type: Spontaneous
  Country: US (occurrence: None)
  Receive Date: 20140306
  Receipt Date: 20140306
  Transmission Date: 20141002
  Serious: Yes (Hospitalization)
  Sender: FDA-Public Use
  Company Number: 163-21880-13072268

PATIENT
  Age: 59 Year
  Sex: Female
  Weight: 70.31 kg

DRUGS (9)
  1. REVLIMID (LENALIDOMIDE) (10 MILLIGRAM, CAPSULES) [Suspect]
     Indication: PLASMA CELL MYELOMA
     Dosage: 10 MG, 21 IN 21 D, PO
     Route: 048
     Dates: start: 201207
  2. ZOMETA (ZOLEDRONIC ACID) (UNKNOWN) [Concomitant]
  3. OMEPRAZOLE (OMEPRAZOLE) (UNKNOWN) [Concomitant]
  4. ACYCLOVIR (ACICLOVIR) (CAPSULES) [Concomitant]
  5. OXYCODONE HCL (OXYCODONE HYDROCHLORIDE) (UNKNOWN) [Concomitant]
  6. MORPHINE SULFATE (MORPHINE SULFATE) (UNKNOWN) [Concomitant]
  7. POTASSIUM (POTASSIUM) (TABLETS) [Concomitant]
  8. CALCIUM CITRATE-VITAMIN (CALCIUM CITRATE W/COLECALCIFEROL) (UNKNOWN) [Concomitant]
  9. ASPIRIN (ACETYLSALICYLIC ACID) (TABLETS) [Concomitant]

REACTIONS (1)
  - Full blood count decreased [None]
